FAERS Safety Report 4784648-0 (Version None)
Quarter: 2005Q3

REPORT INFORMATION
  Report Type: 
  Country: None (occurrence: None)
  Receive Date: 20050930
  Receipt Date: 20050613
  Transmission Date: 20060218
  Serious: Yes (Death)
  Sender: FDA-Public Use
  Company Number: BR-ABBOTT-05P-020-0303417-00

PATIENT
  Sex: Male

DRUGS (1)
  1. CLARITHROMYCIN [Suspect]
     Indication: PROPHYLAXIS
     Dates: start: 20041119, end: 20041120

REACTIONS (2)
  - GASTRIC HAEMORRHAGE [None]
  - OESOPHAGITIS ULCERATIVE [None]
